FAERS Safety Report 8532478-6 (Version None)
Quarter: 2012Q3

REPORT INFORMATION
  Report Type: 
  Country: None (occurrence: None)
  Receive Date: 20120716
  Receipt Date: 20120716
  Transmission Date: 20120928
  Serious: Yes (Hospitalization, Disabling, Other)
  Sender: FDA-Public Use
  Company Number: None

PATIENT
  Age: 47 Year
  Sex: Female
  Weight: 89.3586 kg

DRUGS (3)
  1. TORADOL [Suspect]
     Dosage: 30 MG. 12:47 P.M. IV BOLUS
     Route: 040
     Dates: start: 20120507, end: 20120507
  2. TORADOL [Suspect]
     Indication: HEADACHE
     Dosage: 30 MG. 11:28 A.M. IM
     Route: 030
     Dates: start: 20120507, end: 20120507
  3. TORADOL [Suspect]
     Indication: COUGH
     Dosage: 30 MG. 11:28 A.M. IM
     Route: 030
     Dates: start: 20120507, end: 20120507

REACTIONS (16)
  - EUPHORIC MOOD [None]
  - PHOTOSENSITIVITY REACTION [None]
  - HEARING IMPAIRED [None]
  - COGNITIVE DISORDER [None]
  - DYSARTHRIA [None]
  - HALLUCINATION, VISUAL [None]
  - STUPOR [None]
  - FATIGUE [None]
  - DIZZINESS [None]
  - SOMNOLENCE [None]
  - NERVOUS SYSTEM DISORDER [None]
  - ABNORMAL DREAMS [None]
  - HYPERAESTHESIA [None]
  - MOTOR DYSFUNCTION [None]
  - TREMOR [None]
  - VISION BLURRED [None]
